FAERS Safety Report 15334995 (Version 2)
Quarter: 2018Q3

REPORT INFORMATION
  Report Type: Spontaneous
  Country: US (occurrence: US)
  Receive Date: 20180830
  Receipt Date: 20180927
  Transmission Date: 20181010
  Serious: No
  Sender: FDA-Public Use
  Company Number: US-MYLANLABS-2018M1063228

PATIENT
  Age: 40 Year
  Sex: Female

DRUGS (2)
  1. ESTRADIOL TRANSDERMAL SYSTEM [Suspect]
     Active Substance: ESTRADIOL
     Dosage: UNK
     Route: 062
     Dates: start: 20180820
  2. ESTRADIOL TRANSDERMAL SYSTEM [Suspect]
     Active Substance: ESTRADIOL
     Indication: POSTMENOPAUSE
     Dosage: UNK, TWICE WEEKLY
     Route: 062
     Dates: start: 20180518

REACTIONS (2)
  - Product adhesion issue [Recovering/Resolving]
  - Underdose [Recovering/Resolving]

NARRATIVE: CASE EVENT DATE: 20180821
